FAERS Safety Report 13690469 (Version 1)
Quarter: 2017Q2

REPORT INFORMATION
  Report Type: Spontaneous
  Country: CN (occurrence: CN)
  Receive Date: 20170626
  Receipt Date: 20170626
  Transmission Date: 20170830
  Serious: Yes (Other)
  Sender: FDA-Public Use
  Company Number: CN-JNJFOC-20170616545

PATIENT

DRUGS (2)
  1. RISPERIDONE. [Suspect]
     Active Substance: RISPERIDONE
     Indication: MENTAL DISORDER
     Route: 065
  2. RISPERIDONE. [Suspect]
     Active Substance: RISPERIDONE
     Indication: MENTAL DISORDER
     Dosage: DOSE GRADUALLY INCREASED TO 2-4 MG/DAY IN 2 WEEKS, WITH AVERAGE DOSE OF (22 /-0.7) MG/DAY.
     Route: 065

REACTIONS (5)
  - Extrapyramidal disorder [Unknown]
  - Liver injury [Unknown]
  - Lethargy [Unknown]
  - Weight increased [Unknown]
  - Constipation [Unknown]
